FAERS Safety Report 12570265 (Version 6)
Quarter: 2018Q4

REPORT INFORMATION
  Report Type: Report from Study
  Country: JP (occurrence: JP)
  Receive Date: 20160719
  Receipt Date: 20181024
  Transmission Date: 20190204
  Serious: Yes (Hospitalization, Other)
  Sender: FDA-Public Use
  Company Number: JP-JNJFOC-20160413694

PATIENT
  Age: 53 Year
  Sex: Male
  Weight: 83 kg

DRUGS (5)
  1. YONDELIS [Suspect]
     Active Substance: TRABECTEDIN
     Indication: MYXOFIBROSARCOMA
     Dosage: CYCLE 1 (24-HOUR INFUSION)
     Route: 041
     Dates: start: 20160208
  2. YONDELIS [Suspect]
     Active Substance: TRABECTEDIN
     Indication: MYXOFIBROSARCOMA
     Dosage: CYCLE 1 (24-HOUR INFUSION)
     Route: 041
     Dates: start: 20160118
  3. YONDELIS [Suspect]
     Active Substance: TRABECTEDIN
     Indication: MYXOFIBROSARCOMA
     Dosage: CYCLE 1 (24-HOUR INFUSION)
     Route: 041
     Dates: start: 20160307
  4. YONDELIS [Suspect]
     Active Substance: TRABECTEDIN
     Indication: MYXOFIBROSARCOMA
     Route: 041
     Dates: start: 20160328
  5. DEXAMETHASONE. [Concomitant]
     Active Substance: DEXAMETHASONE
     Indication: PREMEDICATION
     Route: 065
     Dates: start: 20160118

REACTIONS (8)
  - Anaemia [Recovered/Resolved]
  - Neutrophil count decreased [Recovered/Resolved]
  - Implant site extravasation [Recovered/Resolved]
  - Hepatic function abnormal [Recovered/Resolved]
  - Platelet count decreased [Recovered/Resolved]
  - Infusion site necrosis [Recovered/Resolved]
  - Rhabdomyolysis [Recovered/Resolved]
  - Device related infection [Unknown]

NARRATIVE: CASE EVENT DATE: 20160118
